FAERS Safety Report 6472793-3 (Version None)
Quarter: 2009Q4

REPORT INFORMATION
  Report Type: 
  Country: None (occurrence: None)
  Receive Date: 20091201
  Receipt Date: 20091117
  Transmission Date: 20100525
  Serious: Yes (Life-Threatening, Hospitalization, Other)
  Sender: FDA-Public Use
  Company Number: 2009AP004312

PATIENT
  Age: 39 Year
  Sex: Male

DRUGS (11)
  1. OMEPRAZOLE [Suspect]
     Dates: start: 20090217
  2. SIMVASTATIN [Suspect]
     Indication: BLOOD CHOLESTEROL INCREASED
     Dosage: PO
     Route: 048
     Dates: start: 20090217
  3. CLOMIPRAMINE HCL [Suspect]
     Indication: ANXIETY
     Dosage: PO
     Route: 048
     Dates: start: 20090217
  4. CLOMIPRAMINE HCL [Suspect]
     Indication: DEPRESSION
     Dosage: PO
     Route: 048
     Dates: start: 20090217
  5. CLOZARIL [Suspect]
     Indication: SCHIZOPHRENIA
     Dosage: PO; PO
     Route: 048
     Dates: start: 20031202
  6. CLOZARIL [Suspect]
     Indication: SCHIZOPHRENIA
     Dosage: PO; PO
     Route: 048
     Dates: start: 20090217
  7. HYOSCINE HBR HYT [Suspect]
     Dates: start: 20090217
  8. LISINOPRIL [Suspect]
     Indication: HYPERTENSION
     Dosage: 5 MG;QD; PO
     Route: 048
     Dates: start: 20090217
  9. METFORMIN HCL [Suspect]
     Indication: TYPE 2 DIABETES MELLITUS
     Dosage: 500 MG;PO;TID
     Route: 048
     Dates: start: 20090217
  10. SENNA (SENNA) [Suspect]
     Indication: CONSTIPATION
     Dosage: PO
     Route: 048
  11. THIAMINE (THIAMINE) [Concomitant]

REACTIONS (6)
  - AGITATION [None]
  - COMA SCALE ABNORMAL [None]
  - MECHANICAL VENTILATION [None]
  - NEUTROPHIL COUNT INCREASED [None]
  - OVERDOSE [None]
  - WHITE BLOOD CELL COUNT INCREASED [None]
